FAERS Safety Report 20333259 (Version 1)
Quarter: 2022Q1

REPORT INFORMATION
  Report Type: Spontaneous
  Country: CN (occurrence: None)
  Receive Date: 20220113
  Receipt Date: 20220113
  Transmission Date: 20220423
  Serious: Yes (Hospitalization, Other)
  Sender: FDA-Public Use
  Company Number: 2022A013210

PATIENT
  Age: 58 Year
  Sex: Male

DRUGS (5)
  1. GEFITINIB [Suspect]
     Active Substance: GEFITINIB
     Indication: Lung adenocarcinoma
     Dosage: 0.25 G
     Route: 048
  2. OSIMERTINIB [Suspect]
     Active Substance: OSIMERTINIB
     Indication: Lung adenocarcinoma
     Dosage: 80 MG
     Route: 048
  3. PEMETREXED [Concomitant]
     Active Substance: PEMETREXED
     Indication: Lung adenocarcinoma
     Dosage: 800MG (500MG/M2 INTRAVENOUSLY INJECTED ON DAY 1, ONCE EVERY 3WEEKS
     Route: 065
  4. BEVACIZUMAB [Concomitant]
     Active Substance: BEVACIZUMAB
     Indication: Lung adenocarcinoma
     Dosage: 500 MG (7.5MG/KG INTRAVENOUSLY INJECTED ON DAY 1, ONCE EVERY 3 WEEKS
     Route: 065
  5. PACLITAXEL [Concomitant]
     Active Substance: PACLITAXEL
     Indication: Lung adenocarcinoma
     Dosage: 240MG (135MG/M2 INTRAVENOUSLY INJECTED AT DAY 1, ONCE EVERY 3WEEKS
     Route: 065

REACTIONS (7)
  - Metastases to stomach [Unknown]
  - Drug resistance [Unknown]
  - Malignant transformation [Unknown]
  - Acquired gene mutation [Unknown]
  - Metastases to kidney [Unknown]
  - Malignant neoplasm progression [Unknown]
  - Metastases to central nervous system [Unknown]
